FAERS Safety Report 7087304-1 (Version None)
Quarter: 2010Q4

REPORT INFORMATION
  Report Type: 
  Country: None (occurrence: None)
  Receive Date: 20101107
  Receipt Date: 20101007
  Transmission Date: 20110411
  Serious: Yes (Hospitalization, Other)
  Sender: FDA-Public Use
  Company Number: PHHY2010US70970

PATIENT
  Sex: Female
  Weight: 87 kg

DRUGS (7)
  1. ERL 080A ERL+TAB [Suspect]
     Indication: RENAL TRANSPLANT
     Dosage: 720 MG, BID
     Dates: start: 20091212, end: 20100505
  2. PROGRAF [Concomitant]
     Indication: IMMUNOSUPPRESSION
     Dosage: 2 MG, BID
     Dates: start: 20091213, end: 20100505
  3. PREDNISONE [Concomitant]
     Dosage: 5 MG, QD
     Dates: start: 20091214, end: 20100505
  4. VALCYTE [Concomitant]
     Dosage: 480 MG, QD
     Dates: start: 20091214, end: 20100505
  5. METOPROLOL [Concomitant]
     Dosage: 50 MG, BID
  6. SEPTRA [Concomitant]
     Dosage: 1 DF, QD
  7. NYSTATIN [Concomitant]

REACTIONS (10)
  - CHEST X-RAY ABNORMAL [None]
  - CHILLS [None]
  - DYSPNOEA [None]
  - HAEMODIALYSIS [None]
  - HEADACHE [None]
  - PAIN [None]
  - PNEUMONIA [None]
  - PYREXIA [None]
  - SPUTUM DISCOLOURED [None]
  - VOMITING [None]
